FAERS Safety Report 13922566 (Version 1)
Quarter: 2017Q3

REPORT INFORMATION
  Report Type: Spontaneous
  Country: US (occurrence: US)
  Receive Date: 20170830
  Receipt Date: 20170830
  Transmission Date: 20171127
  Serious: No
  Sender: FDA-Public Use
  Company Number: US-TOLMAR, INC.-2017US006913

PATIENT
  Age: 65 Year
  Sex: Male

DRUGS (4)
  1. PANTOPRAZOLE [Concomitant]
     Active Substance: PANTOPRAZOLE
  2. ELIGARD [Suspect]
     Active Substance: LEUPROLIDE ACETATE
     Indication: PRODUCT USED FOR UNKNOWN INDICATION
     Dosage: 45 MG, 6 MONTH DOSE
     Route: 058
  3. LEVOTHYROXINE. [Concomitant]
     Active Substance: LEVOTHYROXINE
  4. CLARITIN [Concomitant]
     Active Substance: LORATADINE

REACTIONS (2)
  - Blood testosterone increased [Unknown]
  - Prostatic specific antigen increased [Unknown]

NARRATIVE: CASE EVENT DATE: 20170527
